FAERS Safety Report 16356928 (Version 1)
Quarter: 2019Q2

REPORT INFORMATION
  Report Type: Spontaneous
  Country: LB (occurrence: LB)
  Receive Date: 20190527
  Receipt Date: 20190527
  Transmission Date: 20190711
  Serious: Yes (Death, Other)
  Sender: FDA-Public Use
  Company Number: LB-SUN PHARMACEUTICAL INDUSTRIES LTD-2019RR-208422

PATIENT
  Age: 45 Year
  Sex: Male

DRUGS (7)
  1. VENETOCLAX. [Suspect]
     Active Substance: VENETOCLAX
     Dosage: 100 MILLIGRAM, DAILY
     Route: 065
     Dates: start: 20180313
  2. HDAC [HIGH DOSE CYTARABINE] [Suspect]
     Active Substance: CYTARABINE
     Indication: PRODUCT USED FOR UNKNOWN INDICATION
     Dosage: UNK
     Route: 065
  3. VENETOCLAX. [Suspect]
     Active Substance: VENETOCLAX
     Indication: PRODUCT USED FOR UNKNOWN INDICATION
     Dosage: UNK
     Route: 065
     Dates: start: 20180217
  4. VORICONAZOLE. [Suspect]
     Active Substance: VORICONAZOLE
     Indication: PRODUCT USED FOR UNKNOWN INDICATION
     Route: 065
  5. 5-AZACITIDINE [Suspect]
     Active Substance: AZACITIDINE
     Indication: LEUKAEMIA RECURRENT
     Dosage: UNK
     Route: 065
  6. FLUCONAZOLE. [Suspect]
     Active Substance: FLUCONAZOLE
     Indication: PRODUCT USED FOR UNKNOWN INDICATION
     Dosage: 200 MILLIGRAM, DAILY
     Route: 065
  7. DECITABINE. [Suspect]
     Active Substance: DECITABINE
     Indication: PRODUCT USED FOR UNKNOWN INDICATION
     Dosage: UNK, 1 CYCLE
     Route: 065
     Dates: start: 201803

REACTIONS (4)
  - Cytopenia [Unknown]
  - Leukaemia recurrent [Unknown]
  - Drug ineffective [Unknown]
  - Pneumonia [Unknown]
